FAERS Safety Report 11395358 (Version 1)
Quarter: 2015Q3

REPORT INFORMATION
  Report Type: Spontaneous
  Country: FR (occurrence: FR)
  Receive Date: 20150819
  Receipt Date: 20150819
  Transmission Date: 20151125
  Serious: Yes (Hospitalization)
  Sender: FDA-Public Use
  Company Number: FR-GE HEALTHCARE MEDICAL DIAGNOSTICS-VISP-PR-1508S-0322

PATIENT
  Age: 83 Year
  Sex: Female

DRUGS (14)
  1. VISIPAQUE [Suspect]
     Active Substance: IODIXANOL
     Indication: CONSTIPATION
     Route: 042
     Dates: start: 20150605, end: 20150605
  2. VISIPAQUE [Suspect]
     Active Substance: IODIXANOL
     Indication: DIAGNOSTIC PROCEDURE
  3. SPASFON [Suspect]
     Active Substance: PHLOROGLUCINOL
     Route: 048
     Dates: start: 20150605, end: 20150611
  4. TRIMEBUTINE [Concomitant]
     Active Substance: TRIMEBUTINE
  5. PRETERAX [Concomitant]
     Active Substance: INDAPAMIDE\PERINDOPRIL
  6. PLAVIX [Concomitant]
     Active Substance: CLOPIDOGREL BISULFATE
  7. IMOVANE [Suspect]
     Active Substance: ZOPICLONE
     Indication: INSOMNIA
     Route: 048
     Dates: start: 20150606, end: 20150611
  8. TAHOR [Concomitant]
     Active Substance: ATORVASTATIN CALCIUM
  9. DIFFU K [Concomitant]
     Active Substance: POTASSIUM CHLORIDE
  10. DOLIPRANE [Concomitant]
     Active Substance: ACETAMINOPHEN
  11. MOVICOL [Suspect]
     Active Substance: POLYETHYLENE GLYCOL 3350\POTASSIUM CHLORIDE\SODIUM BICARBONATE\SODIUM CHLORIDE
     Indication: CONSTIPATION
     Route: 048
     Dates: start: 20150606, end: 20150610
  12. TRANSIPEG [Concomitant]
     Active Substance: POLYETHYLENE GLYCOL 3350
  13. ERYTHROMYCIN. [Suspect]
     Active Substance: ERYTHROMYCIN
     Route: 042
     Dates: start: 20150605, end: 20150605
  14. SERESTA [Concomitant]
     Active Substance: OXAZEPAM

REACTIONS (2)
  - Rash maculo-papular [Recovered/Resolved]
  - Eosinophilia [Recovering/Resolving]

NARRATIVE: CASE EVENT DATE: 201506
